FAERS Safety Report 4871655-2 (Version None)
Quarter: 2006Q1

REPORT INFORMATION
  Report Type: 
  Country: None (occurrence: None)
  Receive Date: 20060104
  Receipt Date: 20051229
  Transmission Date: 20060701
  Serious: Yes (Other)
  Sender: FDA-Public Use
  Company Number: 2005UW19497

PATIENT
  Sex: Male

DRUGS (3)
  1. NEXIUM [Suspect]
     Route: 048
  2. CARBAMAZEPINE [Interacting]
  3. COUGH SYRUP WITH CODEINE [Concomitant]

REACTIONS (2)
  - CONVULSION [None]
  - DRUG INTERACTION [None]
